FAERS Safety Report 9158191 (Version 1)
Quarter: 2013Q1

REPORT INFORMATION
  Report Type: Spontaneous
  Country: FR (occurrence: FR)
  Receive Date: 20130312
  Receipt Date: 20130312
  Transmission Date: 20140127
  Serious: Yes (Hospitalization)
  Sender: FDA-Public Use
  Company Number: FR-ROCHE-1200976

PATIENT
  Age: 75 Year
  Sex: Female

DRUGS (8)
  1. LUCENTIS [Suspect]
     Indication: AGE-RELATED MACULAR DEGENERATION
     Route: 050
     Dates: start: 20071130
  2. LUCENTIS [Suspect]
     Route: 050
     Dates: start: 20080105
  3. LUCENTIS [Suspect]
     Route: 050
     Dates: start: 20080201
  4. VISUDYNE [Suspect]
     Indication: PRODUCT USED FOR UNKNOWN INDICATION
     Route: 042
     Dates: start: 20071122, end: 20071122
  5. PROPRANOLOL [Concomitant]
  6. MONO-TILDIEM [Concomitant]
     Route: 065
  7. SPIRONOLACTONE [Concomitant]
     Route: 065
  8. PRAVASTATIN SODIUM [Concomitant]
     Route: 065
     Dates: end: 20080324

REACTIONS (5)
  - Fatigue [Recovering/Resolving]
  - Muscular weakness [Unknown]
  - Rhinorrhoea [Recovered/Resolved]
  - Myalgia [Unknown]
  - Arthralgia [Unknown]
